FAERS Safety Report 25683352 (Version 1)
Quarter: 2025Q3

REPORT INFORMATION
  Report Type: Report from Study
  Country: SA (occurrence: SA)
  Receive Date: 20250814
  Receipt Date: 20250814
  Transmission Date: 20251020
  Serious: Yes (Life-Threatening, Hospitalization, Other)
  Sender: PURDUE
  Company Number: SA-NAPPMUNDI-GBR-2025-0128045

PATIENT

DRUGS (3)
  1. MORPHINE SULFATE [Suspect]
     Active Substance: MORPHINE SULFATE
     Indication: Pain management
     Route: 042
  2. MORPHINE SULFATE [Suspect]
     Active Substance: MORPHINE SULFATE
     Indication: Pain management
     Route: 042
  3. NALBUPHINE [Suspect]
     Active Substance: NALBUPHINE
     Indication: Pain management
     Route: 042

REACTIONS (3)
  - Intensive care [Unknown]
  - Acute chest syndrome [Unknown]
  - Drug ineffective [Unknown]
